FAERS Safety Report 22237398 (Version 4)
Quarter: 2023Q2

REPORT INFORMATION
  Report Type: Report from Study
  Country: US (occurrence: US)
  Receive Date: 20230421
  Receipt Date: 20230602
  Transmission Date: 20230721
  Serious: Yes (Hospitalization, Other)
  Sender: FDA-Public Use
  Company Number: US-BoehringerIngelheim-2023-BI-232893

PATIENT
  Age: 73 Year
  Sex: Male

DRUGS (2)
  1. OFEV [Suspect]
     Active Substance: NINTEDANIB
     Indication: Interstitial lung disease
     Route: 048
     Dates: start: 2016
  2. OFEV [Suspect]
     Active Substance: NINTEDANIB
     Indication: Idiopathic pulmonary fibrosis
     Route: 048
     Dates: start: 20230411

REACTIONS (8)
  - Brain abscess [Recovered/Resolved]
  - Idiopathic pulmonary fibrosis [Unknown]
  - Diarrhoea [Recovered/Resolved]
  - Constipation [Not Recovered/Not Resolved]
  - Feeling cold [Not Recovered/Not Resolved]
  - Abdominal discomfort [Unknown]
  - Productive cough [Unknown]
  - Nausea [Unknown]

NARRATIVE: CASE EVENT DATE: 20230101
